FAERS Safety Report 6581812-5 (Version None)
Quarter: 2010Q1

REPORT INFORMATION
  Report Type: 
  Country: None (occurrence: None)
  Receive Date: 20100215
  Receipt Date: 20100211
  Transmission Date: 20100710
  Serious: Yes (Death, Other)
  Sender: FDA-Public Use
  Company Number: PHEH2008US05392

PATIENT
  Sex: Female

DRUGS (14)
  1. ZELNORM [Suspect]
  2. CYMBALTA [Concomitant]
     Dosage: 60 MG DAILY
  3. OXYCODONE HCL [Concomitant]
     Dosage: 10 MG 2 TIMES DAILY
  4. MAXIDEX [Concomitant]
     Dosage: DAILY
  5. VERAPAMIL [Concomitant]
     Dosage: 120 MG DAILY
  6. NEURONTIN [Concomitant]
     Dosage: 600 MG
  7. GEODON [Concomitant]
     Dosage: 20 MG AT NIGHT
  8. TIZANIDINE HCL [Concomitant]
     Dosage: 4 MG DAILY
  9. ATIVAN [Concomitant]
     Dosage: .5 MG DAILY
  10. CLINDAMYCIN [Concomitant]
     Dosage: UNK
     Dates: start: 20060613
  11. LEVAQUIN [Concomitant]
     Dosage: 500 MG INTRAVENOUS
     Dates: start: 20060609
  12. FLAGYL [Concomitant]
     Dosage: UNK
  13. ZANAFLEX [Concomitant]
  14. VITAMIN B12 FOR INJECTION [Concomitant]
     Dosage: EVERY 2 WEEKS

REACTIONS (6)
  - ASPIRATION [None]
  - CEREBROVASCULAR ACCIDENT [None]
  - DEMENTIA ALZHEIMER'S TYPE [None]
  - DEPRESSION [None]
  - INJURY [None]
  - RESPIRATORY FAILURE [None]
